FAERS Safety Report 4669792-0 (Version None)
Quarter: 2005Q2

REPORT INFORMATION
  Report Type: 
  Country: None (occurrence: None)
  Receive Date: 20050520
  Receipt Date: 20050510
  Transmission Date: 20051028
  Serious: Yes (Life-Threatening, Hospitalization)
  Sender: FDA-Public Use
  Company Number: 20050400118

PATIENT
  Age: 24 Year
  Sex: Female
  Weight: 74.8435 kg

DRUGS (6)
  1. ATIVAN [Suspect]
     Indication: CONVULSION
     Dosage: 1 MG HS
  2. TEMODAR [Suspect]
     Indication: ANAPLASTIC ASTROCYTOMA
     Dosage: 145 MG QD PO
     Route: 048
     Dates: end: 20020301
  3. DECADRON SRC [Suspect]
     Indication: ILL-DEFINED DISORDER
     Dosage: 4 MG BID
     Dates: start: 20020101
  4. VIOXX [Concomitant]
  5. ZANTAC [Concomitant]
  6. SEPTRA DS (TRIMETHOPRIM/SULFAMETHOXAZOLE) [Concomitant]

REACTIONS (23)
  - ABDOMINAL PAIN UPPER [None]
  - APNOEA [None]
  - BLOOD ALBUMIN DECREASED [None]
  - BLOOD CREATINE INCREASED [None]
  - BONE MARROW DEPRESSION [None]
  - COMA [None]
  - DIABETIC KETOACIDOSIS [None]
  - DIARRHOEA [None]
  - DISEASE PROGRESSION [None]
  - DYSPHAGIA [None]
  - FLUID OVERLOAD [None]
  - GENERALISED OEDEMA [None]
  - HYPOKALAEMIA [None]
  - HYPOMAGNESAEMIA [None]
  - INSOMNIA [None]
  - MEDICAL DEVICE COMPLICATION [None]
  - MUSCLE TWITCHING [None]
  - MUSCULAR WEAKNESS [None]
  - NAUSEA [None]
  - NEUTROPENIA [None]
  - PLEURAL EFFUSION [None]
  - SEPTIC SHOCK [None]
  - TACHYCARDIA [None]
